FAERS Safety Report 15844214 (Version 1)
Quarter: 2019Q1

REPORT INFORMATION
  Report Type: Spontaneous
  Country: NL (occurrence: NL)
  Receive Date: 20190118
  Receipt Date: 20190118
  Transmission Date: 20190417
  Serious: Yes (Other)
  Sender: FDA-Public Use
  Company Number: NL-TERSERA THERAPEUTICS LLC-TSR2019000446

PATIENT

DRUGS (5)
  1. BICALUTAMIDE. [Suspect]
     Active Substance: BICALUTAMIDE
     Indication: ANTIANDROGEN THERAPY
     Dosage: UNK
     Route: 048
  2. ZOLADEX [Suspect]
     Active Substance: GOSERELIN ACETATE
     Indication: ANTIANDROGEN THERAPY
     Dosage: UNK
     Route: 058
  3. DOXORUBICIN [Suspect]
     Active Substance: DOXORUBICIN
     Indication: SALIVARY GLAND CANCER
     Dosage: UNK
     Route: 065
     Dates: start: 20160502
  4. CYCLOPHOSPHAMIDE. [Suspect]
     Active Substance: CYCLOPHOSPHAMIDE
     Indication: SALIVARY GLAND CANCER
     Dosage: UNK
     Route: 065
     Dates: start: 20160502
  5. CISPLATIN. [Suspect]
     Active Substance: CISPLATIN
     Indication: SALIVARY GLAND CANCER
     Dosage: UNK
     Route: 065
     Dates: start: 20160502

REACTIONS (1)
  - Metastases to central nervous system [Unknown]

NARRATIVE: CASE EVENT DATE: 20170213
